FAERS Safety Report 9126031 (Version 1)
Quarter: 2013Q1

REPORT INFORMATION
  Report Type: Spontaneous
  Country: JP (occurrence: JP)
  Receive Date: 20130121
  Receipt Date: 20130121
  Transmission Date: 20140127
  Serious: Yes (Death)
  Sender: FDA-Public Use
  Company Number: JP-BAXTER-2013BAX002125

PATIENT
  Sex: Male
  Weight: 50 kg

DRUGS (3)
  1. DIANEAL-N PD-4 1.5 PD SOLUTION [Suspect]
     Indication: GLOMERULONEPHRITIS
     Route: 033
     Dates: start: 20120412, end: 20130114
  2. DIANEAL-N PD-4 2.5 PD SOLUTION [Suspect]
     Indication: GLOMERULONEPHRITIS
     Route: 033
     Dates: start: 20120412, end: 20130114
  3. EXTRANEAL PD SOLUTION [Suspect]
     Indication: GLOMERULONEPHRITIS
     Route: 033
     Dates: start: 20120412, end: 20130114

REACTIONS (1)
  - Cardiac failure [Fatal]
